FAERS Safety Report 6908256-8 (Version None)
Quarter: 2010Q3

REPORT INFORMATION
  Report Type: 
  Country: None (occurrence: None)
  Receive Date: 20100805
  Receipt Date: 20100730
  Transmission Date: 20110219
  Serious: Yes (Other)
  Sender: FDA-Public Use
  Company Number: DE-BRISTOL-MYERS SQUIBB COMPANY-15220593

PATIENT
  Age: 22 Year
  Sex: Female
  Weight: 55 kg

DRUGS (4)
  1. ABILIFY [Suspect]
     Dosage: 1 DF = 63 TABS, TOTAL 315MG
     Dates: start: 20100730
  2. AMITRIPTYLINE HYDROCHLORIDE [Suspect]
     Dosage: 1 DF = 80 TABLETS OF 75MG (IN TOTAL 6000MG) + 50 TABS OF 25 MG (TOTAL 1250MG).
     Dates: start: 20100730
  3. PROMETHAZINE [Suspect]
     Dosage: 1 DF= 70 TABS (TOTAL 1750MG)
     Dates: start: 20100730
  4. DOMINAL [Suspect]
     Dosage: 1 DF= 20 TAB OF DOMINAL FORTE 40 IN TOTAL 800MG
     Dates: start: 20100730

REACTIONS (5)
  - MULTIPLE DRUG OVERDOSE [None]
  - SELF-INDUCED VOMITING [None]
  - SOMNOLENCE [None]
  - SUICIDAL IDEATION [None]
  - TACHYCARDIA [None]
